FAERS Safety Report 16948165 (Version 1)
Quarter: 2019Q4

REPORT INFORMATION
  Report Type: Spontaneous
  Country: US (occurrence: US)
  Receive Date: 20191022
  Receipt Date: 20191022
  Transmission Date: 20200122
  Serious: No
  Sender: FDA-Public Use
  Company Number: US-ROCHE-2305149

PATIENT
  Age: 54 Year
  Sex: Male

DRUGS (2)
  1. ESBRIET [Suspect]
     Active Substance: PIRFENIDONE
     Indication: PLASMA CELL MYELOMA
     Route: 048
     Dates: start: 201805
  2. LEXAPRO [Concomitant]
     Active Substance: ESCITALOPRAM OXALATE
     Dosage: ANTIDEPRESSANT
     Route: 065

REACTIONS (5)
  - Mood swings [Unknown]
  - Dizziness [Unknown]
  - Off label use [Unknown]
  - Intentional product use issue [Unknown]
  - Agitation [Unknown]

NARRATIVE: CASE EVENT DATE: 201805
